FAERS Safety Report 23094143 (Version 1)
Quarter: 2023Q4

REPORT INFORMATION
  Report Type: Other
  Country: US (occurrence: None)
  Receive Date: 20231023
  Receipt Date: 20231023
  Transmission Date: 20240110
  Serious: Yes (Hospitalization, Other)
  Sender: FDA-Public Use
  Company Number: US-ROCHE-3434478

PATIENT
  Age: 79 Year
  Sex: Female
  Weight: 54.48 kg

DRUGS (15)
  1. ACTEMRA [Suspect]
     Active Substance: TOCILIZUMAB
     Indication: Rheumatoid arthritis
     Dosage: NO
     Route: 058
     Dates: end: 202305
  2. ACTEMRA [Suspect]
     Active Substance: TOCILIZUMAB
  3. ACTEMRA [Suspect]
     Active Substance: TOCILIZUMAB
     Indication: Rheumatoid arthritis
     Route: 042
  4. DONEPEZIL [Concomitant]
     Active Substance: DONEPEZIL
  5. FAMOTIDINE [Concomitant]
     Active Substance: FAMOTIDINE
  6. HYDRALAZINE [Concomitant]
     Active Substance: HYDRALAZINE HYDROCHLORIDE
  7. GABAPENTIN [Concomitant]
     Active Substance: GABAPENTIN
  8. SERTRALINE HYDROCHLORIDE [Concomitant]
     Active Substance: SERTRALINE HYDROCHLORIDE
  9. RAMIPRIL [Concomitant]
     Active Substance: RAMIPRIL
  10. OMEPRAZOLE [Concomitant]
     Active Substance: OMEPRAZOLE
  11. PRAVASTATIN SODIUM [Concomitant]
     Active Substance: PRAVASTATIN SODIUM
  12. HYDROCHLOROTHIAZIDE [Concomitant]
     Active Substance: HYDROCHLOROTHIAZIDE
  13. FOLIC ACID [Concomitant]
     Active Substance: FOLIC ACID
  14. ISOSORBIDE [Concomitant]
     Active Substance: ISOSORBIDE
  15. ELIQUIS [Concomitant]
     Active Substance: APIXABAN

REACTIONS (6)
  - Dementia Alzheimer^s type [Not Recovered/Not Resolved]
  - Abdominal pain upper [Recovered/Resolved]
  - Intestinal obstruction [Unknown]
  - Pain [Not Recovered/Not Resolved]
  - Renal disorder [Unknown]
  - Depression [Not Recovered/Not Resolved]

NARRATIVE: CASE EVENT DATE: 20210801
